FAERS Safety Report 24096491 (Version 1)
Quarter: 2024Q3

REPORT INFORMATION
  Report Type: Spontaneous
  Country: GB (occurrence: GB)
  Receive Date: 20240716
  Receipt Date: 20240716
  Transmission Date: 20241017
  Serious: Yes (Other)
  Sender: ELI LILLY AND CO
  Company Number: GB-MHRA-TPP20080471C10186187YC1719852775510

PATIENT
  Age: 75 Year
  Sex: Female
  Weight: 70 kg

DRUGS (15)
  1. MOUNJARO [Suspect]
     Active Substance: TIRZEPATIDE
     Indication: Product used for unknown indication
     Dosage: 2.5 MG, UNKNOWN
     Route: 065
     Dates: start: 20240701
  2. GAVISCON ADVANCED [Concomitant]
     Indication: Product used for unknown indication
     Dosage: UNK UNK, OTHER, 5ML - 10ML 4 TIMES/DAY WHEN REQUIRED
     Dates: start: 20240411, end: 20240509
  3. BETAMETHASONE VALERATE [Concomitant]
     Active Substance: BETAMETHASONE VALERATE
     Indication: Product used for unknown indication
     Dosage: UNK UNK, OTHER, POTENT STEROID - APPLY TWICE A DAY TO SCALP AS...
     Dates: start: 20240418, end: 20240516
  4. DERMOL HC [Concomitant]
     Indication: Product used for unknown indication
     Dosage: UNK UNK, OTHER, APPLY TO SKIN OR USE AS SOAP SUBSTIT
     Dates: start: 20240425, end: 20240523
  5. KETOCONAZOLE [Concomitant]
     Active Substance: KETOCONAZOLE
     Indication: Product used for unknown indication
     Dosage: UNK UNK, BID
     Dates: start: 20240628
  6. PREDNISOLONE [Concomitant]
     Active Substance: PREDNISOLONE
     Indication: Myalgia
     Dosage: UNK
     Dates: start: 20240529, end: 20240626
  7. BENDROFLUMETHIAZIDE [Concomitant]
     Active Substance: BENDROFLUMETHIAZIDE
     Indication: Product used for unknown indication
     Dosage: 1 DOSAGE FORM, DAILY
     Dates: start: 20110106
  8. ATORVASTATIN [Concomitant]
     Active Substance: ATORVASTATIN
     Indication: Product used for unknown indication
     Dosage: 1 DOSAGE FORM, DAILY
     Dates: start: 20110202
  9. RAMIPRIL [Concomitant]
     Active Substance: RAMIPRIL
     Indication: Product used for unknown indication
     Dosage: 1 DOSAGE FORM, DAILY
     Dates: start: 20120509
  10. CLOBETASOL [Concomitant]
     Active Substance: CLOBETASOL
     Indication: Product used for unknown indication
     Dosage: UNK
     Dates: start: 20141001
  11. OMEPRAZOLE [Concomitant]
     Active Substance: OMEPRAZOLE
     Indication: Product used for unknown indication
     Dosage: UNK, OTHER, ONE OT TWO TO BE TAKEN EACH DAY
     Dates: start: 20150911
  12. DAPAGLIFLOZIN [Concomitant]
     Active Substance: DAPAGLIFLOZIN
     Indication: Product used for unknown indication
     Dosage: 1 DOSAGE FORM, DAILY
     Dates: start: 20200615
  13. CALCIUM CARBONATE\CHOLECALCIFEROL [Concomitant]
     Active Substance: CALCIUM CARBONATE\CHOLECALCIFEROL
     Indication: Product used for unknown indication
     Dosage: 1 DOSAGE FORM, BID
     Dates: start: 20220518
  14. OZEMPIC [Concomitant]
     Active Substance: SEMAGLUTIDE
     Indication: Product used for unknown indication
     Dosage: UNK, WEEKLY (1/W)
     Dates: start: 20221128, end: 20240531
  15. RISEDRONATE SODIUM [Concomitant]
     Active Substance: RISEDRONATE SODIUM
     Indication: Product used for unknown indication
     Dosage: TAKE ONE DAILY
     Dates: start: 20231110, end: 20240531

REACTIONS (7)
  - Oesophageal disorder [Recovering/Resolving]
  - Chest discomfort [Recovered/Resolved]
  - Muscular weakness [Recovering/Resolving]
  - Renal pain [Recovering/Resolving]
  - Headache [Recovering/Resolving]
  - Anaesthesia oral [Recovering/Resolving]
  - Malaise [Unknown]
